FAERS Safety Report 17520243 (Version 2)
Quarter: 2020Q1

REPORT INFORMATION
  Report Type: Spontaneous
  Country: PH (occurrence: PH)
  Receive Date: 20200309
  Receipt Date: 20200313
  Transmission Date: 20200409
  Serious: Yes (Death, Hospitalization, Other)
  Sender: FDA-Public Use
  Company Number: PH-009507513-2003PHL000911

PATIENT
  Age: 58 Year
  Sex: Male
  Weight: 63.5 kg

DRUGS (1)
  1. KEYTRUDA [Suspect]
     Active Substance: PEMBROLIZUMAB
     Indication: NON-SMALL CELL LUNG CANCER
     Dosage: 200 MILLIGRAM, ONCE
     Dates: start: 20200222, end: 20200222

REACTIONS (6)
  - Pulmonary embolism [Fatal]
  - Malignant neoplasm progression [Fatal]
  - Thyroiditis [Fatal]
  - Pulmonary congestion [Unknown]
  - Hypotension [Unknown]
  - Pneumonia [Fatal]

NARRATIVE: CASE EVENT DATE: 2020
